FAERS Safety Report 25353627 (Version 2)
Quarter: 2025Q3

REPORT INFORMATION
  Report Type: Spontaneous
  Country: JP (occurrence: JP)
  Receive Date: 20250523
  Receipt Date: 20250809
  Transmission Date: 20251021
  Serious: Yes (Hospitalization, Other)
  Sender: ALEXION PHARMACEUTICALS
  Company Number: JP-ASTRAZENECA-250049998_063610_P_1

PATIENT
  Age: 79 Year
  Sex: Male

DRUGS (6)
  1. LOKELMA [Suspect]
     Active Substance: SODIUM ZIRCONIUM CYCLOSILICATE
  2. LOKELMA [Suspect]
     Active Substance: SODIUM ZIRCONIUM CYCLOSILICATE
  3. CRESTOR [Suspect]
     Active Substance: ROSUVASTATIN CALCIUM
  4. ASPIRIN [Concomitant]
     Active Substance: ASPIRIN
  5. AMLODIPINE [Concomitant]
     Active Substance: AMLODIPINE BESYLATE
  6. AZILSARTAN KAMEDOXOMIL [Concomitant]
     Active Substance: AZILSARTAN KAMEDOXOMIL

REACTIONS (3)
  - Cardiac failure congestive [Recovering/Resolving]
  - Chronic kidney disease [Unknown]
  - Off label use [Unknown]
